FAERS Safety Report 11985051 (Version 1)
Quarter: 2016Q1

REPORT INFORMATION
  Report Type: Spontaneous
  Country: US (occurrence: US)
  Receive Date: 20160201
  Receipt Date: 20160201
  Transmission Date: 20160526
  Serious: Yes (Death, Hospitalization)
  Sender: FDA-Public Use
  Company Number: US-ABBVIE-16P-163-1550263-00

PATIENT
  Age: 47 Year
  Sex: Male

DRUGS (1)
  1. ANDROGEL [Suspect]
     Active Substance: TESTOSTERONE
     Indication: BLOOD TESTOSTERONE DECREASED
     Route: 061
     Dates: start: 20130228, end: 20131213

REACTIONS (10)
  - Death [Fatal]
  - Pain [Unknown]
  - Myocardial infarction [Unknown]
  - Impaired work ability [Unknown]
  - Disability [Unknown]
  - Pulmonary embolism [Unknown]
  - Balance disorder [Unknown]
  - Injury [Unknown]
  - Economic problem [Unknown]
  - Emotional distress [Unknown]

NARRATIVE: CASE EVENT DATE: 20130410
